FAERS Safety Report 4797328-2 (Version None)
Quarter: 2005Q4

REPORT INFORMATION
  Report Type: 
  Country: None (occurrence: None)
  Receive Date: 20051011
  Receipt Date: 20051011
  Transmission Date: 20060501
  Serious: Yes (Hospitalization)
  Sender: FDA-Public Use
  Company Number: None

PATIENT
  Age: 3 Year
  Sex: Female
  Weight: 16 kg

DRUGS (3)
  1. GENTAMICIN [Suspect]
     Indication: ACUTE LYMPHOCYTIC LEUKAEMIA
     Dosage: 50 MG Q8 PR
     Dates: start: 20050914, end: 20050922
  2. CEFEPIME [Concomitant]
  3. DOCUSATE [Concomitant]

REACTIONS (8)
  - ALBUMIN URINE PRESENT [None]
  - BLOOD CREATININE INCREASED [None]
  - HYPERTENSION [None]
  - NEPHROPATHY TOXIC [None]
  - OEDEMA [None]
  - OEDEMA PERIPHERAL [None]
  - SWELLING FACE [None]
  - URINE OUTPUT DECREASED [None]
